FAERS Safety Report 4330449-7 (Version None)
Quarter: 2004Q1

REPORT INFORMATION
  Report Type: 
  Country: None (occurrence: None)
  Receive Date: 20040330
  Receipt Date: 20040317
  Transmission Date: 20041129
  Serious: Yes (Hospitalization, Other)
  Sender: FDA-Public Use
  Company Number: BE-JNJFOC-20040201607

PATIENT
  Age: 2 Year
  Sex: Male
  Weight: 11.9 kg

DRUGS (13)
  1. PROPULSID [Suspect]
     Indication: GASTROOESOPHAGEAL REFLUX DISEASE
     Dosage: 2.4 MG, 4 IN 1 DAY
     Dates: start: 20030319
  2. AUGMENTIN [Concomitant]
  3. PULMICORT [Concomitant]
  4. VENTOLIN [Concomitant]
  5. ATROVENT (IPRATROPIUM BROMIDE) AMPOULES [Concomitant]
  6. OMEPRAZOLE [Concomitant]
  7. AMOXICILLIN [Concomitant]
  8. ZANTAC [Concomitant]
  9. CECLOR [Concomitant]
  10. DUOVENT (DUOVENT) [Concomitant]
  11. ZITHROMAX [Concomitant]
  12. BRICANYL [Concomitant]
  13. CEFUROXIME AXETIL [Concomitant]

REACTIONS (7)
  - ADENOIDECTOMY [None]
  - BRONCHIAL HYPERACTIVITY [None]
  - BRONCHOPNEUMONIA [None]
  - GASTROOESOPHAGEAL REFLUX DISEASE [None]
  - PNEUMONIA [None]
  - PNEUMONIA RESPIRATORY SYNCYTIAL VIRAL [None]
  - RHINITIS [None]
